FAERS Safety Report 10355227 (Version 7)
Quarter: 2017Q2

REPORT INFORMATION
  Report Type: Report from Study
  Country: BR (occurrence: BR)
  Receive Date: 20140731
  Receipt Date: 20170524
  Transmission Date: 20170829
  Serious: Yes (Life-Threatening, Hospitalization)
  Sender: FDA-Public Use
  Company Number: BR-009507513-1404BRA004432

PATIENT
  Age: 50 Year
  Sex: Male
  Weight: 99 kg

DRUGS (19)
  1. DIMENHYDRINATE. [Concomitant]
     Active Substance: DIMENHYDRINATE
     Indication: PREMEDICATION
     Dosage: 1 AMP, QD
     Route: 042
     Dates: start: 20140224
  2. CYTARABINE. [Concomitant]
     Active Substance: CYTARABINE
     Indication: CHEMOTHERAPY
     Dosage: DOSE:4338 MG,Q3W
     Route: 042
     Dates: start: 20140225, end: 20140225
  3. METFORMIN [Concomitant]
     Active Substance: METFORMIN HYDROCHLORIDE
     Indication: DIABETES MELLITUS
     Dosage: 850 UI, TID
     Route: 058
     Dates: start: 200505
  4. ONDANSETRON HYDROCHLORIDE. [Concomitant]
     Active Substance: ONDANSETRON HYDROCHLORIDE
     Indication: PREMEDICATION
     Dosage: 16 MG, QD
     Route: 042
     Dates: start: 20130224
  5. VARICELLA-ZOSTER VIRUS VACCINE INACTIVATED (OKA/MERCK) [Suspect]
     Active Substance: VARICELLA-ZOSTER VIRUS STRAIN OKA/MERCK LIVE ANTIGEN
     Route: 058
     Dates: start: 20120917, end: 20120917
  6. DEXAMETHASONE. [Suspect]
     Active Substance: DEXAMETHASONE
     Indication: PREMEDICATION
     Dosage: FORMULATION: AMPOULE; 40 MG, QD
     Route: 042
     Dates: start: 20130224
  7. CYTARABINE. [Suspect]
     Active Substance: CYTARABINE
     Dosage: 4338 MG, Q3W; FORMULATION: AMPOULE
     Route: 042
     Dates: start: 20130224, end: 20130224
  8. ARADOIS [Concomitant]
     Active Substance: LOSARTAN POTASSIUM
     Indication: HYPERTENSION
     Dosage: 25 MG, QD
     Route: 048
     Dates: start: 201110, end: 20140315
  9. CISPLATIN. [Suspect]
     Active Substance: CISPLATIN
     Indication: CHEMOTHERAPY
     Dosage: 200 MG, Q3W, FORMULATION: AMPOULE; TOTAL DAILY DOSE 200 MG
     Route: 042
     Dates: start: 20140224
  10. LOSARTAN POTASSIUM. [Concomitant]
     Active Substance: LOSARTAN POTASSIUM
     Indication: HYPERTENSION
     Dosage: 50 MG, QD
     Route: 048
     Dates: start: 201105
  11. ONDANSETRON HYDROCHLORIDE. [Concomitant]
     Active Substance: ONDANSETRON HYDROCHLORIDE
     Dosage: 16 MG, QD
     Route: 042
     Dates: start: 20140224
  12. VARICELLA-ZOSTER VIRUS VACCINE INACTIVATED (OKA/MERCK) [Suspect]
     Active Substance: VARICELLA-ZOSTER VIRUS STRAIN OKA/MERCK LIVE ANTIGEN
     Route: 058
     Dates: start: 20120817, end: 20120817
  13. INSULIN [Concomitant]
     Active Substance: INSULIN NOS
     Indication: DIABETES MELLITUS
     Dosage: 30 UI, BID
     Route: 058
     Dates: start: 200505, end: 20140415
  14. DEXAMETHASONE. [Concomitant]
     Active Substance: DEXAMETHASONE
     Indication: CHEMOTHERAPY
     Dosage: 40 MG, QD
     Route: 042
     Dates: start: 20140224
  15. VARICELLA-ZOSTER VIRUS VACCINE INACTIVATED (OKA/MERCK) [Suspect]
     Active Substance: VARICELLA-ZOSTER VIRUS STRAIN OKA/MERCK LIVE ANTIGEN
     Indication: PROPHYLAXIS
     Route: 058
     Dates: start: 20130110, end: 20130110
  16. MANNITOL. [Concomitant]
     Active Substance: MANNITOL
     Indication: CHEMOTHERAPY
     Dosage: 100 ML, Q3W
     Route: 042
     Dates: start: 20140224
  17. HYDROCHLOROTHIAZIDE. [Concomitant]
     Active Substance: HYDROCHLOROTHIAZIDE
     Indication: HYPERTENSION
     Dosage: 25 MG, QD
     Route: 048
     Dates: start: 200505, end: 20140315
  18. DIMENHYDRINATE. [Concomitant]
     Active Substance: DIMENHYDRINATE
     Dosage: 1 AMP, QD
     Route: 042
     Dates: start: 20140224
  19. CISPLATIN (+) CYTARABINE (+) MANNITOL [Concomitant]
     Indication: CHEMOTHERAPY
     Dosage: FORMULATION AMPULE, Q3W
     Route: 042
     Dates: start: 20140224

REACTIONS (1)
  - Renal failure [Recovered/Resolved]

NARRATIVE: CASE EVENT DATE: 20140305
